FAERS Safety Report 20348045 (Version 4)
Quarter: 2022Q2

REPORT INFORMATION
  Report Type: Report from Study
  Country: JP (occurrence: JP)
  Receive Date: 20220118
  Receipt Date: 20220407
  Transmission Date: 20220720
  Serious: Yes (Death)
  Sender: FDA-Public Use
  Company Number: JP-ABBVIE-19K-087-3009293-00

PATIENT
  Sex: Female
  Weight: 42.5 kg

DRUGS (12)
  1. CARBIDOPA\LEVODOPA [Suspect]
     Active Substance: CARBIDOPA\LEVODOPA
     Indication: Parkinson^s disease
     Dosage: MD: 4 ML CD: 1.4 ML/HR
     Route: 050
     Dates: start: 20190913, end: 20190915
  2. CARBIDOPA\LEVODOPA [Suspect]
     Active Substance: CARBIDOPA\LEVODOPA
     Dosage: MD: 4 ML CD: 1.6 ML/HR
     Route: 050
     Dates: start: 20190916, end: 20190916
  3. CARBIDOPA\LEVODOPA [Suspect]
     Active Substance: CARBIDOPA\LEVODOPA
     Dosage: MD: 4 ML CD: 2.0 ML/HR
     Route: 050
     Dates: start: 20190917, end: 20190917
  4. CARBIDOPA\LEVODOPA [Suspect]
     Active Substance: CARBIDOPA\LEVODOPA
     Dosage: MD: 4 ML CD: 2.2 ML/HR
     Route: 050
     Dates: start: 20190918, end: 20190918
  5. CARBIDOPA\LEVODOPA [Suspect]
     Active Substance: CARBIDOPA\LEVODOPA
     Dosage: MD: 6 ML CD: 2.1 ML/HR
     Route: 050
     Dates: start: 20191219, end: 20200714
  6. CARBIDOPA\LEVODOPA [Suspect]
     Active Substance: CARBIDOPA\LEVODOPA
     Dosage: MD: 6 ML CD: 2.3 ML/HR
     Route: 050
     Dates: start: 20200715, end: 20210608
  7. CARBIDOPA\LEVODOPA [Suspect]
     Active Substance: CARBIDOPA\LEVODOPA
     Dosage: MD: 6 ML CD: 2.5 ML/HR
     Route: 050
     Dates: start: 20210609, end: 20210824
  8. CARBIDOPA\LEVODOPA [Suspect]
     Active Substance: CARBIDOPA\LEVODOPA
     Dosage: MD: 7 ML CD: 2.5 ML/HR
     Route: 050
     Dates: start: 20210825
  9. ROTIGOTINE [Concomitant]
     Active Substance: ROTIGOTINE
     Indication: Parkinson^s disease
     Route: 062
  10. MIRTAZAPINE [Concomitant]
     Active Substance: MIRTAZAPINE
     Indication: Depression
     Route: 048
  11. MAGNESIUM OXIDE [Concomitant]
     Active Substance: MAGNESIUM OXIDE
     Indication: Constipation
     Route: 048
  12. FAMOTIDINE [Concomitant]
     Active Substance: FAMOTIDINE
     Indication: Gastritis
     Route: 048

REACTIONS (5)
  - Myocardial infarction [Fatal]
  - Shock [Fatal]
  - Mobility decreased [Unknown]
  - Pain in extremity [Unknown]
  - Stoma site reaction [Recovering/Resolving]

NARRATIVE: CASE EVENT DATE: 20190101
